FAERS Safety Report 20929508 (Version 1)
Quarter: 2022Q2

REPORT INFORMATION
  Report Type: Spontaneous
  Country: US (occurrence: US)
  Receive Date: 20220608
  Receipt Date: 20220608
  Transmission Date: 20220721
  Serious: Yes (Other)
  Sender: FDA-Public Use
  Company Number: US-SA-SAC20220603001088

PATIENT
  Age: 54 Year
  Sex: Female

DRUGS (1)
  1. ZANTAC [Suspect]
     Active Substance: RANITIDINE HYDROCHLORIDE
     Indication: Dyspepsia
     Dosage: UNK, QD
     Route: 065
     Dates: start: 200701, end: 201912

REACTIONS (4)
  - Squamous cell carcinoma [Unknown]
  - Lung neoplasm malignant [Recovered/Resolved]
  - Gastric cancer [Recovered/Resolved]
  - Lung squamous cell carcinoma stage III [Unknown]

NARRATIVE: CASE EVENT DATE: 20091001
